FAERS Safety Report 9638964 (Version 1)
Quarter: 2013Q4

REPORT INFORMATION
  Report Type: Spontaneous
  Country: IT (occurrence: None)
  Receive Date: 20131018
  Receipt Date: 20131018
  Transmission Date: 20140711
  Serious: Yes (Hospitalization)
  Sender: FDA-Public Use
  Company Number: 2013AP008918

PATIENT
  Age: 93 Year
  Sex: Female

DRUGS (7)
  1. PAROXETINE HYDROCHLORIDE [Suspect]
     Indication: DEPRESSION
     Dosage: 20 MG; QD; PO
     Route: 048
     Dates: start: 20130101, end: 20130616
  2. NATRILIX [Suspect]
     Indication: HYPERTENSION
     Dosage: 2.5 MG; QD; PO
     Route: 048
     Dates: start: 20130101, end: 20130616
  3. FOLINA [Concomitant]
  4. TIKLID [Concomitant]
  5. ARIMIDEX [Concomitant]
  6. TAVOR [Concomitant]
  7. OMEPRAZEN [Concomitant]

REACTIONS (5)
  - Asthma [None]
  - Cardiac asthma [None]
  - Oedema peripheral [None]
  - Hyponatraemia [None]
  - Cardiac failure [None]
